FAERS Safety Report 10346182 (Version 2)
Quarter: 2014Q3

REPORT INFORMATION
  Report Type: Spontaneous
  Country: US (occurrence: US)
  Receive Date: 20140728
  Receipt Date: 20140805
  Transmission Date: 20150326
  Serious: No
  Sender: FDA-Public Use
  Company Number: US-009507513-1407USA011864

PATIENT
  Age: 34 Year
  Sex: Female
  Weight: 108.84 kg

DRUGS (4)
  1. CLARITIN [Suspect]
     Active Substance: LORATADINE
     Indication: HYPERSENSITIVITY
     Dosage: UNK, UNKNOWN
     Route: 048
     Dates: start: 20140701, end: 20140715
  2. CLARITIN [Suspect]
     Active Substance: LORATADINE
     Indication: NASAL CONGESTION
  3. CLARITIN [Suspect]
     Active Substance: LORATADINE
     Indication: THROAT IRRITATION
  4. CLARITIN [Suspect]
     Active Substance: LORATADINE
     Indication: EYE PRURITUS

REACTIONS (1)
  - Drug ineffective [Unknown]

NARRATIVE: CASE EVENT DATE: 20140701
